FAERS Safety Report 13128569 (Version 4)
Quarter: 2018Q1

REPORT INFORMATION
  Report Type: Spontaneous
  Country: US (occurrence: US)
  Receive Date: 20170118
  Receipt Date: 20180214
  Transmission Date: 20180508
  Serious: No
  Sender: FDA-Public Use
  Company Number: US-TEVA-726717ACC

PATIENT
  Age: 38 Year
  Sex: Female

DRUGS (24)
  1. HYDROCODONE BITARTRATE AND ACETAMINOPHEN [Concomitant]
     Active Substance: ACETAMINOPHEN\HYDROCODONE BITARTRATE
     Dosage: 7.5-750
  2. SERTRALINE [Concomitant]
     Active Substance: SERTRALINE HYDROCHLORIDE
  3. CLINDAMYCIN. [Concomitant]
     Active Substance: CLINDAMYCIN
  4. COPAXONE [Suspect]
     Active Substance: GLATIRAMER ACETATE
     Indication: MULTIPLE SCLEROSIS
     Dosage: PRE FILLED SYRINGE
     Route: 058
     Dates: start: 20100302
  5. PROCTOZONE CREAM HYROCHLORIDE 2.5% [Concomitant]
  6. RISPERIDONE TABLET [Concomitant]
     Active Substance: RISPERIDONE
  7. OXYBUTYNIN. [Concomitant]
     Active Substance: OXYBUTYNIN CHLORIDE
  8. ZOLOFT [Concomitant]
     Active Substance: SERTRALINE HYDROCHLORIDE
  9. AZITHROMYCIN ANHYDROUS. [Concomitant]
     Active Substance: AZITHROMYCIN ANHYDROUS
  10. GABAPENTIN. [Concomitant]
     Active Substance: GABAPENTIN
  11. RISPERIDONE TABLET [Concomitant]
     Active Substance: RISPERIDONE
  12. BENZTROPINE [Concomitant]
     Active Substance: BENZTROPINE
  13. HYDROCODONE BITARTRATE AND ACETAMINOPHEN [Concomitant]
     Active Substance: ACETAMINOPHEN\HYDROCODONE BITARTRATE
     Dosage: 5-500 MG
  14. COPAXONE [Suspect]
     Active Substance: GLATIRAMER ACETATE
     Dosage: PRE FILLED SYRINGE
     Route: 058
     Dates: start: 2007
  15. QVAR [Concomitant]
     Active Substance: BECLOMETHASONE DIPROPIONATE
  16. RISPERIDONE TABLET [Concomitant]
     Active Substance: RISPERIDONE
  17. IBUPROFEN. [Concomitant]
     Active Substance: IBUPROFEN
  18. ZONISAMIDE. [Concomitant]
     Active Substance: ZONISAMIDE
  19. ARTIFICIAL TEARS SOLUTION [Concomitant]
     Dosage: SOLUTION
     Route: 047
  20. BACLOFEN. [Concomitant]
     Active Substance: BACLOFEN
  21. DOCOLACE [Concomitant]
  22. FLUTICASONE. [Concomitant]
     Active Substance: FLUTICASONE
  23. SUMATRIPTAN. [Concomitant]
     Active Substance: SUMATRIPTAN
  24. COPAXONE [Suspect]
     Active Substance: GLATIRAMER ACETATE
     Dates: start: 20140327

REACTIONS (11)
  - Fall [Unknown]
  - Fall [Unknown]
  - Wrist fracture [Unknown]
  - Decreased appetite [Not Recovered/Not Resolved]
  - Diarrhoea [Unknown]
  - Fatigue [Not Recovered/Not Resolved]
  - Memory impairment [Not Recovered/Not Resolved]
  - Visual impairment [Not Recovered/Not Resolved]
  - Personality change [Not Recovered/Not Resolved]
  - Joint injury [Unknown]
  - Constipation [Unknown]

NARRATIVE: CASE EVENT DATE: 201610
